FAERS Safety Report 18154292 (Version 2)
Quarter: 2020Q4

REPORT INFORMATION
  Report Type: Report from Study
  Country: US (occurrence: US)
  Receive Date: 20200817
  Receipt Date: 20201019
  Transmission Date: 20210113
  Serious: Yes (Hospitalization)
  Sender: FDA-Public Use
  Company Number: US-ROCHE-2657962

PATIENT
  Age: 51 Year
  Sex: Male
  Weight: 97.61 kg

DRUGS (12)
  1. VENETOCLAX. [Suspect]
     Active Substance: VENETOCLAX
     Indication: MANTLE CELL LYMPHOMA
     Dosage: ON DAYS 1-28 OF COURSE 1 AND DAYS 1-10 OF SUBSEQUENT COURSES.
     Route: 048
  2. VANCOMYCIN [Concomitant]
     Active Substance: VANCOMYCIN
     Dosage: VANCOMYCIN 250 MG
  3. VALACYCLOVIR [Concomitant]
     Active Substance: VALACYCLOVIR HYDROCHLORIDE
     Dosage: VALACYCLOVIR 500 MG
  4. TRAMADOL. [Concomitant]
     Active Substance: TRAMADOL
     Dosage: TRAMADOL 50 MG
  5. OXYCODONE [Concomitant]
     Active Substance: OXYCODONE
     Dosage: OXYCODONE 5 MG
  6. OBINUTUZUMAB. [Suspect]
     Active Substance: OBINUTUZUMAB
     Indication: MANTLE CELL LYMPHOMA
     Dosage: STRENGTH: 1000 MG IV 500 ML?50ML/HR (FREQUENCY)?ON DAYS 1, 8, AND 15 OF COURSE 1 AND DAY 1 OF SUBSEQ
     Route: 042
     Dates: start: 20200103, end: 20200521
  7. PANTOPRAZOLE [Concomitant]
     Active Substance: PANTOPRAZOLE
     Dosage: PANTOPRAZOLE 40 MG
  8. BACTRIM DS [Concomitant]
     Active Substance: SULFAMETHOXAZOLE\TRIMETHOPRIM
     Dosage: BACTRIM DS 800 MG-160 MG
  9. PROCHLORPERAZINE. [Concomitant]
     Active Substance: PROCHLORPERAZINE
     Dosage: PROCHLORPERAZINE 10 MG
  10. BENDAMUSTINE [Suspect]
     Active Substance: BENDAMUSTINE
     Indication: MANTLE CELL LYMPHOMA
     Dosage: STRENGTH: 222MG IV 50 ML
     Route: 042
     Dates: start: 20200103, end: 20200503
  11. POVIDONE-IODINE. [Concomitant]
     Active Substance: POVIDONE-IODINE
     Dosage: POVIDONE-IODINE TOPICAL 5%
     Route: 061
  12. LORAZEPAM. [Concomitant]
     Active Substance: LORAZEPAM

REACTIONS (1)
  - Appendicitis [Recovered/Resolved]

NARRATIVE: CASE EVENT DATE: 20200808
